FAERS Safety Report 16059923 (Version 4)
Quarter: 2019Q3

REPORT INFORMATION
  Report Type: Spontaneous
  Country: US (occurrence: US)
  Receive Date: 20190312
  Receipt Date: 20190927
  Transmission Date: 20191004
  Serious: No
  Sender: FDA-Public Use
  Company Number: US-GLAXOSMITHKLINE-US2019039237

PATIENT
  Age: 63 Year
  Sex: Female

DRUGS (4)
  1. CARVEDILOL PHOSPHATE. [Suspect]
     Active Substance: CARVEDILOL PHOSPHATE
     Indication: PRODUCT USED FOR UNKNOWN INDICATION
     Dosage: 10 MG, UNK
     Route: 065
  2. CARVEDILOL. [Suspect]
     Active Substance: CARVEDILOL
     Indication: PRODUCT USED FOR UNKNOWN INDICATION
     Dosage: 3.125 MG, BID
     Route: 065
  3. COREG CR [Suspect]
     Active Substance: CARVEDILOL PHOSPHATE
     Indication: MITRAL VALVE PROLAPSE
     Dosage: 10 MG, QD
     Route: 048
     Dates: start: 20190226
  4. COREG [Suspect]
     Active Substance: CARVEDILOL
     Indication: PRODUCT USED FOR UNKNOWN INDICATION
     Dosage: 3.125 MG, BID
     Route: 048

REACTIONS (13)
  - Chest pain [Unknown]
  - Skin discolouration [Recovered/Resolved]
  - Feeling abnormal [Recovered/Resolved]
  - Cough [Recovered/Resolved]
  - Fatigue [Unknown]
  - Condition aggravated [Unknown]
  - Drug ineffective [Unknown]
  - Blood pressure increased [Unknown]
  - Heart rate increased [Unknown]
  - Product availability issue [Unknown]
  - Hypotension [Recovered/Resolved]
  - Drug intolerance [Unknown]
  - Constipation [Unknown]

NARRATIVE: CASE EVENT DATE: 20190226
